FAERS Safety Report 9668453 (Version 2)
Quarter: 2013Q4

REPORT INFORMATION
  Report Type: Spontaneous
  Country: ZA (occurrence: ZA)
  Receive Date: 20131105
  Receipt Date: 20131121
  Transmission Date: 20140711
  Serious: Yes (Life-Threatening, Other)
  Sender: FDA-Public Use
  Company Number: ZA-009507513-1311ZAF000047

PATIENT
  Age: 41 Year
  Sex: Female
  Weight: 80.9 kg

DRUGS (7)
  1. ESMERON [Suspect]
     Indication: HYPOTONIA
     Dosage: UNK
     Route: 042
     Dates: start: 20130327, end: 20130327
  2. SUFENTA [Suspect]
     Indication: SURGERY
  3. PROPOFOL [Concomitant]
     Indication: SURGERY
     Dosage: UNK
     Route: 042
     Dates: start: 20130327, end: 20130327
  4. PROPOFOL [Concomitant]
     Indication: INDUCTION OF ANAESTHESIA
  5. PERFALGAN [Concomitant]
     Indication: ANALGESIC THERAPY
     Dosage: UNK
     Route: 042
     Dates: start: 20130327, end: 20130327
  6. SEVOFLURANE [Concomitant]
     Indication: MAINTENANCE OF ANAESTHESIA
     Dosage: MAC 2 %
     Route: 055
     Dates: start: 20130327, end: 20130327
  7. LIDOCAINE [Concomitant]
     Indication: BURNING SENSATION
     Dosage: UNK
     Route: 042
     Dates: start: 20130327, end: 20130327

REACTIONS (5)
  - Musculoskeletal stiffness [Recovered/Resolved]
  - Laryngospasm [Unknown]
  - Apnoea [Recovered/Resolved]
  - Endotracheal intubation complication [Recovered/Resolved]
  - Mechanical ventilation [Recovered/Resolved]
